FAERS Safety Report 20801866 (Version 3)
Quarter: 2022Q3

REPORT INFORMATION
  Report Type: Spontaneous
  Country: US (occurrence: US)
  Receive Date: 20220509
  Receipt Date: 20220816
  Transmission Date: 20221027
  Serious: No
  Sender: FDA-Public Use
  Company Number: US-BRISTOL-MYERS SQUIBB COMPANY-2022-017680

PATIENT
  Age: 77 Year
  Sex: Female

DRUGS (1)
  1. REVLIMID [Suspect]
     Active Substance: LENALIDOMIDE
     Indication: Chemotherapy
     Dosage: FREQUENCY: FOR 21 DAYS ON, THEN 7 DAYS OFF.
     Route: 048
     Dates: start: 20151104

REACTIONS (3)
  - Blood potassium decreased [Recovered/Resolved]
  - Asthenia [Unknown]
  - Back pain [Unknown]
